FAERS Safety Report 4761511-2 (Version None)
Quarter: 2005Q3

REPORT INFORMATION
  Report Type: 
  Country: None (occurrence: None)
  Receive Date: 20050906
  Receipt Date: 20050829
  Transmission Date: 20060218
  Serious: Yes (Other)
  Sender: FDA-Public Use
  Company Number: JP-JPN-A20052030

PATIENT
  Sex: Female

DRUGS (1)
  1. FLUTIDE DISKUS [Suspect]
     Route: 055

REACTIONS (3)
  - ERUCTATION [None]
  - NAUSEA [None]
  - OESOPHAGEAL ATRESIA [None]
